FAERS Safety Report 8344142-7 (Version None)
Quarter: 2012Q2

REPORT INFORMATION
  Report Type: 
  Country: None (occurrence: None)
  Receive Date: 20120508
  Receipt Date: 20120503
  Transmission Date: 20120825
  Serious: Yes (Death, Hospitalization)
  Sender: FDA-Public Use
  Company Number: PHEH2012US007128

PATIENT
  Sex: Male

DRUGS (6)
  1. LEXAPRO [Concomitant]
     Dosage: 10 MG, DAILY
  2. TASIGNA [Suspect]
     Indication: CHRONIC MYELOID LEUKAEMIA
     Dosage: 400 MG, TWICE DAILY
     Route: 048
     Dates: start: 20120101
  3. COREG [Concomitant]
  4. CEFEPIME [Concomitant]
  5. RABEPRAZOLE SODIUM [Concomitant]
     Dosage: 40 MG, DAILY
  6. ACYCLERIN [Concomitant]
     Dosage: 800 MG, BID

REACTIONS (3)
  - WHITE BLOOD CELL COUNT INCREASED [None]
  - CHRONIC MYELOID LEUKAEMIA [None]
  - NEOPLASM MALIGNANT [None]
